FAERS Safety Report 4631121-6 (Version None)
Quarter: 2005Q2

REPORT INFORMATION
  Report Type: 
  Country: None (occurrence: None)
  Receive Date: 20050405
  Receipt Date: 20050405
  Transmission Date: 20051028
  Serious: Yes (Death, Hospitalization)
  Sender: FDA-Public Use
  Company Number: None

PATIENT
  Sex: Female

DRUGS (1)
  1. ANTITHYMOCYTE GLOBULIN [Suspect]
     Indication: STEM CELL TRANSPLANT

REACTIONS (4)
  - DRUG TOXICITY [None]
  - HAEMODIALYSIS [None]
  - NEUROTOXICITY [None]
  - RENAL FAILURE ACUTE [None]
